FAERS Safety Report 20194594 (Version 1)
Quarter: 2021Q4

REPORT INFORMATION
  Report Type: Spontaneous
  Country: JP (occurrence: JP)
  Receive Date: 20211216
  Receipt Date: 20211216
  Transmission Date: 20220304
  Serious: Yes (Other)
  Sender: FDA-Public Use
  Company Number: JP-PFIZER INC-202101732568

PATIENT
  Age: 69 Year
  Sex: Male

DRUGS (3)
  1. METHOTREXATE [Suspect]
     Active Substance: METHOTREXATE
     Indication: Lymphoma
     Dosage: 3500 MG/M2
  2. PROCARBAZINE [Concomitant]
     Active Substance: PROCARBAZINE
     Indication: Lymphoma
     Dosage: 100 MG/M2
  3. VINCRISTINE [Concomitant]
     Active Substance: VINCRISTINE
     Indication: Lymphoma
     Dosage: 2 MG

REACTIONS (1)
  - Toxic encephalopathy [Recovering/Resolving]
